FAERS Safety Report 26070236 (Version 1)
Quarter: 2025Q4

REPORT INFORMATION
  Report Type: Spontaneous
  Country: EU (occurrence: EU)
  Receive Date: 20251120
  Receipt Date: 20251120
  Transmission Date: 20260117
  Serious: Yes (Other)
  Sender: BRECKENRIDGE PHARMACEUTICAL, INC.
  Company Number: EU-Breckenridge Pharmaceutical, Inc.-2188965

PATIENT
  Sex: Female

DRUGS (2)
  1. DULOXETINE [Suspect]
     Active Substance: DULOXETINE
     Indication: Anxiety
  2. IBUPROFEN [Concomitant]
     Active Substance: IBUPROFEN

REACTIONS (2)
  - Oesophagitis [Recovered/Resolved]
  - Medication error [Unknown]
